FAERS Safety Report 10972698 (Version 1)
Quarter: 2015Q1

REPORT INFORMATION
  Report Type: Other
  Country: DE (occurrence: DE)
  Receive Date: 20150331
  Receipt Date: 20150331
  Transmission Date: 20150721
  Serious: Yes (Hospitalization, Other)
  Sender: FDA-Public Use
  Company Number: DE-MYLANLABS-2015M1009308

PATIENT

DRUGS (3)
  1. CLOZAPIN [Suspect]
     Active Substance: CLOZAPINE
     Indication: SCHIZOPHRENIA, PARANOID TYPE
     Dosage: 800 MG
     Route: 048
     Dates: start: 201411, end: 20150305
  2. ABILIFY [Concomitant]
     Active Substance: ARIPIPRAZOLE
     Indication: SCHIZOPHRENIA, PARANOID TYPE
     Dosage: 5 MG
     Route: 048
     Dates: start: 20150223, end: 20150302
  3. SOLIAN [Concomitant]
     Active Substance: AMISULPRIDE
     Indication: SCHIZOPHRENIA, PARANOID TYPE
     Dosage: 100 MG
     Route: 048
     Dates: start: 20150302

REACTIONS (1)
  - White blood cell disorder [Recovered/Resolved]

NARRATIVE: CASE EVENT DATE: 20150305
